FAERS Safety Report 7580950-8 (Version None)
Quarter: 2011Q2

REPORT INFORMATION
  Report Type: 
  Country: None (occurrence: None)
  Receive Date: 20110622
  Receipt Date: 20110608
  Transmission Date: 20111010
  Serious: Yes (Death, Hospitalization)
  Sender: FDA-Public Use
  Company Number: 2011MA007075

PATIENT
  Age: 44 Year
  Sex: Female

DRUGS (9)
  1. DIAZEPAM [Suspect]
  2. ZOPICLONE [Concomitant]
  3. FOLIC ACID [Suspect]
  4. OLANZAPINE [Concomitant]
  5. CITALOPRAM HYDROBROMIDE [Concomitant]
  6. HALOPERIDOL LACTATE [Suspect]
  7. ALCOHOL (ETHANOL) [Suspect]
     Dosage: ; PO
     Route: 048
  8. CLOZARIL [Suspect]
     Indication: SCHIZOPHRENIA
     Dates: start: 20041008
  9. ALLOPURINOL [Concomitant]

REACTIONS (4)
  - CARDIOPULMONARY FAILURE [None]
  - MALAISE [None]
  - SUDDEN DEATH [None]
  - OVERDOSE [None]
